FAERS Safety Report 15125501 (Version 3)
Quarter: 2018Q3

REPORT INFORMATION
  Report Type: Spontaneous
  Country: CN (occurrence: CN)
  Receive Date: 20180710
  Receipt Date: 20180822
  Transmission Date: 20181010
  Serious: Yes (Other)
  Sender: FDA-Public Use
  Company Number: CN-APOTEX-2018AP016929

PATIENT
  Age: 36 Year
  Sex: Female

DRUGS (8)
  1. SEROXAT [Suspect]
     Active Substance: PAROXETINE HYDROCHLORIDE
     Dosage: 0.5 DF, QD  (TABLET)
     Route: 048
  2. CLONAZEPAM. [Suspect]
     Active Substance: CLONAZEPAM
     Indication: PANIC DISORDER
     Dosage: UNK
     Route: 048
  3. ESCITALOPRAM OXALATE. [Suspect]
     Active Substance: ESCITALOPRAM OXALATE
     Indication: PANIC DISORDER
     Dosage: UNK
     Route: 065
  4. SEROXAT [Suspect]
     Active Substance: PAROXETINE HYDROCHLORIDE
     Dosage: 1.5 DF, QD (TABLET)
     Route: 048
  5. SEROXAT [Suspect]
     Active Substance: PAROXETINE HYDROCHLORIDE
     Dosage: 0.5 DF, QOD (TABLET)
     Route: 048
     Dates: end: 20180622
  6. SEROXAT [Suspect]
     Active Substance: PAROXETINE HYDROCHLORIDE
     Dosage: 1 DF, QD (TABLET), 25 MG
     Route: 048
     Dates: start: 20180623
  7. SEROXAT [Suspect]
     Active Substance: PAROXETINE HYDROCHLORIDE
     Indication: PANIC DISORDER
     Dosage: 0.5 DF, QD, 20 MG
     Route: 048
  8. SEROXAT [Suspect]
     Active Substance: PAROXETINE HYDROCHLORIDE
     Indication: PANIC DISORDER
     Dosage: 1 DF, QD (TABLET), 25 MG
     Route: 048
     Dates: start: 20180623

REACTIONS (16)
  - Drug ineffective [Unknown]
  - Chorioretinopathy [Unknown]
  - Asthenia [Not Recovered/Not Resolved]
  - Somnolence [Unknown]
  - Fear [Unknown]
  - Cough [Recovered/Resolved]
  - Disease recurrence [Recovered/Resolved]
  - Visual impairment [Unknown]
  - Soft tissue disorder [Not Recovered/Not Resolved]
  - Product use issue [Unknown]
  - Depressed mood [Not Recovered/Not Resolved]
  - Dry eye [Not Recovered/Not Resolved]
  - Productive cough [Recovered/Resolved]
  - Weight increased [Not Recovered/Not Resolved]
  - Depression [Unknown]
  - Product use in unapproved indication [Unknown]
